FAERS Safety Report 5236717-9 (Version None)
Quarter: 2007Q1

REPORT INFORMATION
  Report Type: 
  Country: None (occurrence: None)
  Receive Date: 20070209
  Receipt Date: 20060821
  Transmission Date: 20070707
  Serious: Yes (Other)
  Sender: FDA-Public Use
  Company Number: 2006VX001498

PATIENT
  Age: 70 Year
  Sex: Female
  Weight: 69.9 kg

DRUGS (5)
  1. TASMAR [Suspect]
     Indication: PARKINSON'S DISEASE
     Dosage: 100 MG, TID;
     Dates: start: 20060223, end: 20060815
  2. PROPRANOLOL [Concomitant]
  3. CLONAZEPAM [Concomitant]
  4. ZOPICLONE [Concomitant]
  5. CLEXANE [Concomitant]

REACTIONS (3)
  - ALANINE AMINOTRANSFERASE INCREASED [None]
  - GENERAL PHYSICAL HEALTH DETERIORATION [None]
  - LUNG NEOPLASM MALIGNANT [None]
